FAERS Safety Report 7883550-5 (Version None)
Quarter: 2011Q4

REPORT INFORMATION
  Report Type: 
  Country: None (occurrence: None)
  Receive Date: 20111102
  Receipt Date: 20111018
  Transmission Date: 20120403
  Serious: Yes (Other)
  Sender: FDA-Public Use
  Company Number: US-ELI_LILLY_AND_COMPANY-US201008004936

PATIENT
  Sex: Female

DRUGS (15)
  1. FORTEO [Suspect]
     Dosage: 20 UG, DAILY (1/D)
  2. SOMA [Concomitant]
  3. FORTEO [Suspect]
     Indication: OSTEOPOROSIS
     Dosage: 20 UG, DAILY (1/D)
     Dates: start: 20100624, end: 20101109
  4. FORTEO [Suspect]
     Dosage: 20 UG, DAILY (1/D)
  5. NAPROXEN SODIUM [Concomitant]
     Indication: INFLAMMATION
     Dosage: 1 D/F, DAILY (1/D)
  6. CYMBALTA [Suspect]
     Dosage: UNK, UNKNOWN
     Route: 065
  7. FORTEO [Suspect]
     Dosage: 20 UG, DAILY (1/D)
  8. GABAPENTIN [Concomitant]
     Dosage: UNK, PRN
  9. PREDNISONE [Concomitant]
     Indication: INFLAMMATION
     Dosage: 1 D/F, DAILY (1/D)
  10. FORTEO [Suspect]
     Dosage: 20 UG, DAILY (1/D)
     Dates: end: 20101109
  11. FORTEO [Suspect]
     Dosage: 20 UG, QD
     Dates: end: 20110301
  12. VICODIN [Concomitant]
     Indication: PAIN
     Dosage: UNK, DAILY (1/D)
  13. METHOTREXATE [Concomitant]
     Indication: RHEUMATOID ARTHRITIS
     Dosage: 1 D/F, WEEKLY (1/W)
  14. FLU [Concomitant]
  15. FOLIC ACID [Concomitant]
     Dosage: 1 MG, QD

REACTIONS (33)
  - ADVERSE DRUG REACTION [None]
  - INJECTION SITE HAEMATOMA [None]
  - LIPOMA [None]
  - URINARY TRACT DISORDER [None]
  - VARICELLA [None]
  - MUSCLE SPASMS [None]
  - TENDONITIS [None]
  - NEOPLASM [None]
  - FOOT FRACTURE [None]
  - MUSCULOSKELETAL DISCOMFORT [None]
  - LETHARGY [None]
  - HEADACHE [None]
  - ARTHRALGIA [None]
  - LIMB INJURY [None]
  - VEIN DISORDER [None]
  - EYELID FUNCTION DISORDER [None]
  - MASS [None]
  - MUSCULOSKELETAL DISORDER [None]
  - FALL [None]
  - GROIN PAIN [None]
  - DIZZINESS [None]
  - HYPERHIDROSIS [None]
  - FRACTURE [None]
  - ABDOMINAL DISTENSION [None]
  - KIDNEY INFECTION [None]
  - CYST [None]
  - GAIT DISTURBANCE [None]
  - CONTUSION [None]
  - ANKLE FRACTURE [None]
  - CHILLS [None]
  - ABDOMINAL DISCOMFORT [None]
  - FATIGUE [None]
  - FEELING ABNORMAL [None]
